FAERS Safety Report 23509272 (Version 1)
Quarter: 2024Q1

REPORT INFORMATION
  Report Type: Spontaneous
  Country: JP (occurrence: JP)
  Receive Date: 20240210
  Receipt Date: 20240210
  Transmission Date: 20240410
  Serious: Yes (Hospitalization, Other)
  Sender: FDA-Public Use
  Company Number: None

PATIENT
  Age: 42 Year
  Sex: Male

DRUGS (3)
  1. PREDNISOLONE [Suspect]
     Active Substance: PREDNISOLONE
     Indication: Myelin oligodendrocyte glycoprotein antibody-associated disease
     Dosage: 60 MILLIGRAM PER DAY
     Route: 048
  2. PREDNISOLONE [Suspect]
     Active Substance: PREDNISOLONE
     Indication: Encephalitis
  3. PREDNISOLONE [Suspect]
     Active Substance: PREDNISOLONE
     Indication: Generalised tonic-clonic seizure

REACTIONS (1)
  - Delirium [Unknown]
